FAERS Safety Report 9248703 (Version 6)
Quarter: 2013Q2

REPORT INFORMATION
  Report Type: Spontaneous
  Country: US (occurrence: US)
  Receive Date: 20130423
  Receipt Date: 20130628
  Transmission Date: 20140414
  Serious: No
  Sender: FDA-Public Use
  Company Number: US-009507513-1304USA009289

PATIENT
  Age: 15 Year
  Sex: Female
  Weight: 51.7 kg

DRUGS (3)
  1. NEXPLANON [Suspect]
     Dosage: 1 DF, UNK
     Route: 059
     Dates: start: 20130416, end: 20130416
  2. NEXPLANON [Suspect]
     Dosage: 1 DF, UNK
     Route: 059
     Dates: start: 20130419, end: 20130503
  3. NEXPLANON [Suspect]
     Dosage: 1 DF, UNK
     Route: 059
     Dates: start: 20130503

REACTIONS (8)
  - Device difficult to use [Recovered/Resolved]
  - Product quality issue [Unknown]
  - Device difficult to use [Recovered/Resolved]
  - Product quality issue [Unknown]
  - Surgery [Unknown]
  - Wound [Unknown]
  - Device expulsion [Recovered/Resolved]
  - Suture insertion [Unknown]
